FAERS Safety Report 6715407-7 (Version None)
Quarter: 2010Q2

REPORT INFORMATION
  Report Type: 
  Country: None (occurrence: None)
  Receive Date: 20100507
  Receipt Date: 20100507
  Transmission Date: 20101027
  Serious: Yes (Life-Threatening, Hospitalization)
  Sender: FDA-Public Use
  Company Number: None

PATIENT
  Age: 11 Year
  Sex: Male
  Weight: 36.2878 kg

DRUGS (1)
  1. CHILDREN'S TYLENOL 80 MG PER 1/2 TEASPOON JOHNSON AND JOHNSON [Suspect]
     Indication: PYREXIA
     Dosage: 2 AND A HALF TEASPOONS EVERY 4 HOURS PO
     Route: 048
     Dates: start: 20091020, end: 20091029

REACTIONS (2)
  - PRODUCT CONTAMINATION [None]
  - STEVENS-JOHNSON SYNDROME [None]
